FAERS Safety Report 16296442 (Version 2)
Quarter: 2019Q2

REPORT INFORMATION
  Report Type: Report from Study
  Country: CA (occurrence: CA)
  Receive Date: 20190510
  Receipt Date: 20190513
  Transmission Date: 20190711
  Serious: Yes (Hospitalization, Other)
  Sender: FDA-Public Use
  Company Number: CA-JNJFOC-20190504145

PATIENT
  Age: 17 Year
  Sex: Male
  Weight: 47.2 kg

DRUGS (1)
  1. STELARA [Suspect]
     Active Substance: USTEKINUMAB
     Indication: CROHN^S DISEASE
     Dosage: STRENGTH = 90 MG
     Route: 058

REACTIONS (5)
  - Pallor [Unknown]
  - Drug ineffective [Unknown]
  - Nasopharyngitis [Recovering/Resolving]
  - Escherichia infection [Unknown]
  - Dark circles under eyes [Unknown]

NARRATIVE: CASE EVENT DATE: 20190424
